FAERS Safety Report 9475498 (Version 1)
Quarter: 2013Q3

REPORT INFORMATION
  Report Type: Spontaneous
  Country: US (occurrence: None)
  Receive Date: 20130822
  Receipt Date: 20130822
  Transmission Date: 20140515
  Serious: Yes (Hospitalization)
  Sender: FDA-Public Use
  Company Number: None

PATIENT
  Age: 72 Year
  Sex: Male

DRUGS (2)
  1. METHADONE [Suspect]
     Indication: DRUG WITHDRAWAL MAINTENANCE THERAPY
     Route: 048
     Dates: start: 20080205
  2. LORAZEPAM [Suspect]
     Route: 048

REACTIONS (5)
  - Fall [None]
  - Gait disturbance [None]
  - Concussion [None]
  - Balance disorder [None]
  - Self-medication [None]
